FAERS Safety Report 8105836-1 (Version None)
Quarter: 2012Q1

REPORT INFORMATION
  Report Type: 
  Country: None (occurrence: None)
  Receive Date: 20120201
  Receipt Date: 20120120
  Transmission Date: 20120608
  Serious: Yes (Hospitalization, Other)
  Sender: FDA-Public Use
  Company Number: US-BRISTOL-MYERS SQUIBB COMPANY-16361966

PATIENT
  Age: 67 Year
  Sex: Male
  Weight: 81 kg

DRUGS (14)
  1. PROVENGE [Suspect]
     Indication: PROSTATE CANCER
     Route: 042
     Dates: start: 20111215, end: 20111215
  2. ZOLOFT [Concomitant]
  3. NEURONTIN [Concomitant]
  4. RANITIDINE [Concomitant]
  5. ZANTAC [Concomitant]
  6. CHOLECALCIFEROL [Concomitant]
  7. COUMADIN [Suspect]
     Dosage: 1DF=2.5UNITS NOS
  8. SIMVASTATIN [Concomitant]
  9. DIGOXIN [Concomitant]
  10. SYNTHROID [Concomitant]
  11. METFORMIN HCL [Concomitant]
  12. AMLODIPINE [Concomitant]
  13. PERCOCET [Concomitant]
  14. FISH OIL [Concomitant]

REACTIONS (26)
  - DIZZINESS [None]
  - ATRIAL FIBRILLATION [None]
  - BLOOD CREATINE PHOSPHOKINASE INCREASED [None]
  - CONFUSIONAL STATE [None]
  - ASTHENIA [None]
  - PERIPHERAL ARTERIAL OCCLUSIVE DISEASE [None]
  - BLOOD GLUCOSE INCREASED [None]
  - BLOOD PRESSURE DIASTOLIC DECREASED [None]
  - INTERNATIONAL NORMALISED RATIO INCREASED [None]
  - HYPONATRAEMIA [None]
  - HYPOPHAGIA [None]
  - CHOKING [None]
  - TRANSIENT ISCHAEMIC ATTACK [None]
  - PNEUMONIA [None]
  - RESPIRATORY DISTRESS [None]
  - VASOCONSTRICTION [None]
  - BLOOD UREA INCREASED [None]
  - COUGH [None]
  - PERIPHERAL VASCULAR DISORDER [None]
  - ANAEMIA [None]
  - INSOMNIA [None]
  - UPPER RESPIRATORY TRACT INFECTION [None]
  - MALNUTRITION [None]
  - DECREASED APPETITE [None]
  - TOXICITY TO VARIOUS AGENTS [None]
  - BODY TEMPERATURE INCREASED [None]
